FAERS Safety Report 15003542 (Version 1)
Quarter: 2018Q2

REPORT INFORMATION
  Report Type: Report from Study
  Country: None (occurrence: US)
  Receive Date: 20180613
  Receipt Date: 20180613
  Transmission Date: 20180711
  Serious: Yes (Other)
  Sender: FDA-Public Use
  Company Number: US-ABBVIE-18K-163-2371216-00

PATIENT
  Sex: Male

DRUGS (1)
  1. HUMIRA [Suspect]
     Active Substance: ADALIMUMAB
     Indication: PSORIASIS
     Route: 058

REACTIONS (7)
  - Pre-existing condition improved [Unknown]
  - Rash papular [Unknown]
  - Cataract operation complication [Unknown]
  - Cataract [Recovering/Resolving]
  - Blindness [Unknown]
  - Therapeutic response unexpected [Unknown]
  - Skin disorder [Unknown]

NARRATIVE: CASE EVENT DATE: 2018
